FAERS Safety Report 16154119 (Version 1)
Quarter: 2019Q2

REPORT INFORMATION
  Report Type: Spontaneous
  Country: FR (occurrence: FR)
  Receive Date: 20190403
  Receipt Date: 20190403
  Transmission Date: 20190711
  Serious: Yes (Other)
  Sender: FDA-Public Use
  Company Number: FR-AMREGENT-20190590

PATIENT
  Age: 78 Year
  Sex: Female

DRUGS (1)
  1. FERINJECT [Suspect]
     Active Substance: FERRIC CARBOXYMALTOSE
     Dosage: UNKNOWN
     Route: 042
     Dates: start: 20190201, end: 20190201

REACTIONS (3)
  - Haematoma [Recovered/Resolved]
  - Skin discolouration [Not Recovered/Not Resolved]
  - Injection site extravasation [Recovered/Resolved]

NARRATIVE: CASE EVENT DATE: 20190201
